FAERS Safety Report 6594481-5 (Version None)
Quarter: 2010Q1

REPORT INFORMATION
  Report Type: 
  Country: None (occurrence: None)
  Receive Date: 20100222
  Receipt Date: 20100203
  Transmission Date: 20100710
  Serious: No
  Sender: FDA-Public Use
  Company Number: US-BAYER-201010260GPV

PATIENT
  Sex: Female

DRUGS (3)
  1. ALEVE (CAPLET) [Suspect]
     Indication: ARTHRALGIA
     Route: 048
  2. BONIVA [Suspect]
     Indication: OSTEOPOROSIS
     Dosage: UNIT DOSE: 3 MG
     Route: 042
     Dates: start: 20090924, end: 20090924
  3. CALCIUM + VITAMIN D [Concomitant]
     Indication: OSTEOPOROSIS
     Route: 065

REACTIONS (4)
  - ARTHRALGIA [None]
  - DYSPEPSIA [None]
  - HYPERTENSION [None]
  - JOINT RANGE OF MOTION DECREASED [None]
